FAERS Safety Report 8314495-4 (Version None)
Quarter: 2012Q2

REPORT INFORMATION
  Report Type: 
  Country: None (occurrence: None)
  Receive Date: 20120426
  Receipt Date: 20120418
  Transmission Date: 20120825
  Serious: Yes (Death, Hospitalization)
  Sender: FDA-Public Use
  Company Number: US-ACTELION-A-US2012-62287

PATIENT

DRUGS (4)
  1. TRACLEER [Suspect]
     Indication: PULMONARY ARTERIAL HYPERTENSION
     Dosage: 125 MG, BID
     Route: 048
     Dates: start: 20070110
  2. REVATIO [Concomitant]
  3. VENTAVIS [Suspect]
     Indication: PULMONARY ARTERIAL HYPERTENSION
     Dosage: 5 ?G/ML, 5-6X/DAY
     Route: 055
     Dates: start: 20090921
  4. AMIODARONE HCL [Concomitant]

REACTIONS (6)
  - ABDOMINAL PAIN [None]
  - PULSELESS ELECTRICAL ACTIVITY [None]
  - RESPIRATORY FAILURE [None]
  - PNEUMONIA [None]
  - MULTI-ORGAN FAILURE [None]
  - HEART DISEASE CONGENITAL [None]
